FAERS Safety Report 8312322-2 (Version None)
Quarter: 2012Q2

REPORT INFORMATION
  Report Type: 
  Country: None (occurrence: None)
  Receive Date: 20120425
  Receipt Date: 20120413
  Transmission Date: 20120825
  Serious: Yes (Other)
  Sender: FDA-Public Use
  Company Number: CA-ROCHE-1060017

PATIENT
  Sex: Female
  Weight: 61.2 kg

DRUGS (6)
  1. VITAMIN TAB [Concomitant]
  2. ASCORBIC ACID [Concomitant]
  3. PREDNISONE [Concomitant]
  4. METHOTREXATE [Concomitant]
  5. VITAMIN D [Concomitant]
  6. MABTHERA [Suspect]
     Indication: RHEUMATOID ARTHRITIS
     Route: 042
     Dates: start: 20110414

REACTIONS (2)
  - INTERVERTEBRAL DISC DISORDER [None]
  - OSTEOPOROSIS [None]
